FAERS Safety Report 5235905-5 (Version None)
Quarter: 2007Q1

REPORT INFORMATION
  Report Type: 
  Country: None (occurrence: None)
  Receive Date: 20061208
  Receipt Date: 20060426
  Transmission Date: 20070707
  Serious: Yes (Other)
  Sender: FDA-Public Use
  Company Number: 2006UW07496

PATIENT
  Age: 70 Year
  Sex: Female
  Weight: 163 kg

DRUGS (4)
  1. CRESTOR [Suspect]
     Indication: BLOOD CHOLESTEROL INCREASED
     Dosage: 10 MG PO
     Route: 048
     Dates: start: 20060325
  2. TOPROL-XL [Concomitant]
  3. PLETAL [Concomitant]
  4. WATER PILL [Concomitant]

REACTIONS (2)
  - DRY SKIN [None]
  - RASH PRURITIC [None]
